FAERS Safety Report 22044039 (Version 1)
Quarter: 2023Q1

REPORT INFORMATION
  Report Type: Spontaneous
  Country: US (occurrence: None)
  Receive Date: 20230227
  Receipt Date: 20230227
  Transmission Date: 20230417
  Serious: Yes (Hospitalization)
  Sender: FDA-Public Use
  Company Number: None

PATIENT
  Sex: Female

DRUGS (1)
  1. ADCIRCA [Suspect]
     Active Substance: TADALAFIL
     Indication: Pulmonary arterial hypertension
     Dosage: 20MG BID BY MOUTH
     Route: 048
     Dates: start: 202103

REACTIONS (4)
  - Asthma [None]
  - Blood potassium decreased [None]
  - Hypotension [None]
  - Fall [None]
